FAERS Safety Report 4607455-8 (Version None)
Quarter: 2005Q1

REPORT INFORMATION
  Report Type: 
  Country: None (occurrence: None)
  Receive Date: 20050309
  Receipt Date: 20041117
  Transmission Date: 20050727
  Serious: Yes (Other)
  Sender: FDA-Public Use
  Company Number: 210541

PATIENT
  Age: 32 Year
  Sex: Female

DRUGS (1)
  1. ACTILYSE (ALTEPLASE) PWDR + SOLVENT, INFUSION SOLN [Suspect]
     Indication: CEREBROVASCULAR ACCIDENT
     Dosage: 60 MG, QD, INTRAVENOUS
     Route: 042
     Dates: start: 20040511

REACTIONS (3)
  - CARDIOLIPIN ANTIBODY POSITIVE [None]
  - DRUG EXPOSURE DURING PREGNANCY [None]
  - PREMATURE LABOUR [None]
